FAERS Safety Report 10943515 (Version 3)
Quarter: 2015Q3

REPORT INFORMATION
  Report Type: Spontaneous
  Country: US (occurrence: US)
  Receive Date: 20150322
  Receipt Date: 20150807
  Transmission Date: 20151125
  Serious: No
  Sender: FDA-Public Use
  Company Number: US-JNJFOC-20141109033

PATIENT
  Sex: Male

DRUGS (1)
  1. RISPERDAL [Suspect]
     Active Substance: RISPERIDONE
     Indication: ABNORMAL BEHAVIOUR
     Route: 048
     Dates: start: 2001, end: 2003

REACTIONS (7)
  - Product use issue [Unknown]
  - Galactorrhoea [Unknown]
  - Gynaecomastia [Unknown]
  - Weight increased [Unknown]
  - Malaise [Unknown]
  - Emotional disorder [Unknown]
  - Somnolence [Unknown]
